FAERS Safety Report 10199514 (Version 1)
Quarter: 2014Q2

REPORT INFORMATION
  Report Type: Spontaneous
  Country: US (occurrence: None)
  Receive Date: 20140523
  Receipt Date: 20140523
  Transmission Date: 20141212
  Serious: No
  Sender: FDA-Public Use
  Company Number: None

PATIENT
  Age: 30 Year
  Sex: Female
  Weight: 85.73 kg

DRUGS (1)
  1. SULFAMETHOXAZOLE [Suspect]
     Dosage: 1 PILL  TWICE DAILY TAKEN BY MOUTH
     Route: 048
     Dates: start: 20140520, end: 20140520

REACTIONS (6)
  - Influenza like illness [None]
  - Skin disorder [None]
  - Headache [None]
  - Nausea [None]
  - Pyrexia [None]
  - Dyspnoea [None]
